FAERS Safety Report 7132519-7 (Version None)
Quarter: 2010Q4

REPORT INFORMATION
  Report Type: 
  Country: None (occurrence: None)
  Receive Date: 20101202
  Receipt Date: 20101125
  Transmission Date: 20110411
  Serious: Yes (Other)
  Sender: FDA-Public Use
  Company Number: BE-ROCHE-744543

PATIENT
  Age: 65 Year
  Sex: Male

DRUGS (4)
  1. AVASTIN [Suspect]
     Dosage: AFTER FEW CYCLES THERAPY WAS DISCONTINUED.
     Route: 042
  2. FLUOROURACIL [Concomitant]
     Dosage: AFTER FEW CYCLES THERAPY WAS DISCONTINUED.
  3. FOLINIC ACID [Concomitant]
     Dosage: AFTER FEW CYCLES THERAPY WAS DISCONTINUED.
  4. IRINOTECAN HCL [Concomitant]
     Dosage: AFTER FEW CYCLES THERAPY WAS DISCONTINUED.

REACTIONS (1)
  - SIGMOIDITIS [None]
